FAERS Safety Report 9544494 (Version 2)
Quarter: 2013Q3

REPORT INFORMATION
  Report Type: Spontaneous
  Country: FR (occurrence: FR)
  Receive Date: 20130923
  Receipt Date: 20130925
  Transmission Date: 20140515
  Serious: Yes (Hospitalization)
  Sender: FDA-Public Use
  Company Number: FR-B.I. PHARMACEUTICALS,INC./RIDGEFIELD-2013-BI-29636YA

PATIENT
  Age: 89 Year
  Sex: Female

DRUGS (8)
  1. TAMSULOSINA [Suspect]
     Indication: MICTURITION DISORDER
     Dosage: 1 DF
     Route: 048
  2. NISISCO (HYDROCHLOROTHIAZIDE, VALSARTAN) [Suspect]
     Indication: HYPERTENSION
     Dosage: DAILY DOSE:DOSE PER APPLICATION:80 MG/ 12.5 MG
     Route: 048
  3. LAROXYL [Suspect]
     Indication: ABDOMINAL PAIN
     Dosage: 40 MG/ML ORALLY 15 DROPS ONCE
     Route: 048
  4. PRAZEPAM [Suspect]
     Indication: PRODUCT USED FOR UNKNOWN INDICATION
     Dosage: DAILY DOSE:0.5DF
  5. L-THYROXINE [Concomitant]
     Indication: PRODUCT USED FOR UNKNOWN INDICATION
  6. SERETIDE [Concomitant]
  7. STILNOX [Concomitant]
  8. MOVICOL [Concomitant]

REACTIONS (2)
  - Malaise [Recovered/Resolved]
  - Labile blood pressure [Recovered/Resolved]
